FAERS Safety Report 6074536-4 (Version None)
Quarter: 2009Q1

REPORT INFORMATION
  Report Type: 
  Country: None (occurrence: None)
  Receive Date: 20090206
  Receipt Date: 20090202
  Transmission Date: 20090719
  Serious: Yes (Death)
  Sender: FDA-Public Use
  Company Number: IPS_01439_2009

PATIENT
  Age: 77 Year
  Sex: Male

DRUGS (1)
  1. APOKYN [Suspect]
     Indication: PARKINSON'S DISEASE
     Dosage: ONE DOSE SUBCUTANEOUS
     Route: 058
     Dates: start: 20081001, end: 20081001

REACTIONS (2)
  - FALL [None]
  - PULMONARY OEDEMA [None]
